FAERS Safety Report 8824911 (Version 2)
Quarter: 2012Q4

REPORT INFORMATION
  Report Type: 
  Country: US (occurrence: US)
  Receive Date: 20121004
  Receipt Date: 20121108
  Transmission Date: 20130627
  Serious: Yes (Hospitalization)
  Sender: FDA-Public Use
  Company Number: US-FRI-1000039102

PATIENT
  Age: 78 Year
  Sex: Male

DRUGS (17)
  1. DALIRESP [Suspect]
     Indication: EMPHYSEMA
     Dosage: 500 mcg
     Route: 048
     Dates: start: 2011, end: 201209
  2. ZEMAIRA [Concomitant]
     Dosage: 1000 mg
  3. LEVALBUTEROL [Concomitant]
     Dosage: 1.25 mg/0.5 mL
  4. SPIRIVA [Concomitant]
     Dosage: 18 mcg
  5. ADVAIR HFA [Concomitant]
     Dosage: 230 mcg/21mcg
  6. PREDNISONE [Concomitant]
     Dosage: 12.5 mg
  7. PRAVASTATIN [Concomitant]
     Dosage: 40 mg
  8. BYSTOLIC [Concomitant]
     Dosage: 5 mg
  9. PLAVIX [Concomitant]
     Dosage: 75 mg
  10. ASPIRIN [Concomitant]
     Dosage: 81 mg
  11. FISH OIL [Concomitant]
     Dosage: 1000 mg BID
  12. MULTIVITAMIN NOS [Concomitant]
  13. BONIVA [Concomitant]
     Dosage: 3 mL every 3 months
  14. VITAMIN D [Concomitant]
     Dosage: 50,000 IU
  15. MUCINEX [Concomitant]
  16. VITAMIN C [Concomitant]
     Dosage: 500 mg
  17. LASIX [Concomitant]
     Dosage: 20 mg

REACTIONS (6)
  - Clostridium difficile infection [Recovered/Resolved]
  - Gynaecomastia [Recovered/Resolved]
  - Diarrhoea [Recovering/Resolving]
  - Body temperature fluctuation [Recovered/Resolved]
  - Blood iron decreased [Not Recovered/Not Resolved]
  - Off label use [Recovered/Resolved]
